FAERS Safety Report 18086364 (Version 2)
Quarter: 2021Q1

REPORT INFORMATION
  Report Type: Spontaneous
  Country: US (occurrence: US)
  Receive Date: 20200729
  Receipt Date: 20210315
  Transmission Date: 20210419
  Serious: Yes (Other)
  Sender: FDA-Public Use
  Company Number: US-GLAXOSMITHKLINE-US2020144865

PATIENT
  Sex: Male

DRUGS (14)
  1. RANITIDINE. [Suspect]
     Active Substance: RANITIDINE
     Indication: BLADDER CANCER
     Dosage: 75 MG PRESCRIPTION
     Route: 065
     Dates: start: 199801, end: 200808
  2. ZANTAC [Suspect]
     Active Substance: RANITIDINE HYDROCHLORIDE
     Dates: start: 20150115, end: 20190115
  3. ZANTAC [Suspect]
     Active Substance: RANITIDINE HYDROCHLORIDE
     Dosage: 150 MG, QD
     Route: 065
     Dates: start: 199001, end: 200912
  4. RANITIDINE CAPSULE [Suspect]
     Active Substance: RANITIDINE
     Indication: BLADDER CANCER
     Dosage: 75 MG BOTH
     Route: 065
     Dates: start: 199001, end: 200912
  5. ZANTAC [Suspect]
     Active Substance: RANITIDINE HYDROCHLORIDE
     Indication: BLADDER CANCER
     Dosage: 75 MG BOTH
     Route: 065
     Dates: start: 199001, end: 200912
  6. ZANTAC [Suspect]
     Active Substance: RANITIDINE HYDROCHLORIDE
     Indication: BLADDER CANCER
     Dosage: 75 MG BOTH
     Route: 065
     Dates: start: 199001, end: 200912
  7. ZANTAC [Suspect]
     Active Substance: RANITIDINE HYDROCHLORIDE
     Dosage: 150 MG, QD
     Route: 065
     Dates: start: 199001, end: 200912
  8. ZANTAC [Suspect]
     Active Substance: RANITIDINE HYDROCHLORIDE
     Indication: BLADDER CANCER
     Dosage: 75 MG BOTH
     Route: 065
     Dates: start: 199001, end: 200912
  9. ZANTAC [Suspect]
     Active Substance: RANITIDINE HYDROCHLORIDE
     Dosage: 150 MG, QD
     Route: 065
     Dates: start: 199001, end: 200912
  10. RANITIDINE. [Suspect]
     Active Substance: RANITIDINE
     Indication: BLADDER CANCER
     Dosage: 75 MG PRESCRIPTION
     Route: 065
     Dates: start: 199801, end: 200808
  11. RANITIDINE. [Suspect]
     Active Substance: RANITIDINE
     Dosage: 150 MG, QD
     Route: 065
     Dates: start: 199801, end: 200808
  12. RANITIDINE. [Suspect]
     Active Substance: RANITIDINE
     Dosage: 150 MG, QD
     Route: 065
     Dates: start: 199801, end: 200808
  13. ZANTAC [Suspect]
     Active Substance: RANITIDINE HYDROCHLORIDE
     Dosage: UNK
  14. RANITIDINE CAPSULE [Suspect]
     Active Substance: RANITIDINE
     Dosage: 150 MG, QD
     Route: 065
     Dates: start: 199001, end: 200912

REACTIONS (1)
  - Bladder cancer [Unknown]
